FAERS Safety Report 15762546 (Version 2)
Quarter: 2019Q1

REPORT INFORMATION
  Report Type: Spontaneous
  Country: US (occurrence: US)
  Receive Date: 20181226
  Receipt Date: 20190128
  Transmission Date: 20190417
  Serious: Yes (Other)
  Sender: FDA-Public Use
  Company Number: US-PFIZER INC-2018521950

PATIENT
  Age: 52 Year
  Sex: Male

DRUGS (4)
  1. GABAPENTIN. [Suspect]
     Active Substance: GABAPENTIN
     Indication: SPINAL CORD INJURY LUMBAR
     Dosage: 800 MG, 3X/DAY
  2. GABAPENTIN. [Suspect]
     Active Substance: GABAPENTIN
     Indication: PHANTOM PAIN
     Dosage: 800 MG, 3X/DAY (400 MG CAPS 2 TID (THREE TIME A DAY))
     Route: 048
     Dates: start: 201811
  3. GABAPENTIN. [Suspect]
     Active Substance: GABAPENTIN
     Indication: FIBROMYALGIA
     Dosage: UNK(HIGHER DOSES)
  4. GABAPENTIN. [Suspect]
     Active Substance: GABAPENTIN
     Indication: NEURALGIA

REACTIONS (7)
  - Colon injury [Unknown]
  - Circulatory collapse [Unknown]
  - Diarrhoea [Unknown]
  - Hypoaesthesia [Unknown]
  - Product use in unapproved indication [Unknown]
  - Hyponatraemia [Unknown]
  - Constipation [Recovered/Resolved]
